FAERS Safety Report 4561577-9 (Version None)
Quarter: 2005Q1

REPORT INFORMATION
  Report Type: 
  Country: None (occurrence: None)
  Receive Date: 20050121
  Receipt Date: 20050104
  Transmission Date: 20050727
  Serious: Yes (Other)
  Sender: FDA-Public Use
  Company Number: USA040607268

PATIENT
  Age: 35 Year
  Sex: Male

DRUGS (1)
  1. HUMULIN 70/30 [Suspect]
     Indication: DIABETES MELLITUS
     Dosage: 58 U DAY

REACTIONS (6)
  - BLOOD GLUCOSE FLUCTUATION [None]
  - DIABETIC NEUROPATHY [None]
  - DIABETIC ULCER [None]
  - FOREIGN BODY TRAUMA [None]
  - PHARMACEUTICAL PRODUCT COMPLAINT [None]
  - SCAR [None]
